FAERS Safety Report 22091393 (Version 1)
Quarter: 2023Q1

REPORT INFORMATION
  Report Type: Other
  Country: US (occurrence: None)
  Receive Date: 20230314
  Receipt Date: 20230314
  Transmission Date: 20230418
  Serious: Yes (Hospitalization)
  Sender: FDA-Public Use
  Company Number: US-ROCHE-3300125

PATIENT
  Age: 66 Year
  Sex: Female
  Weight: 96.248 kg

DRUGS (1)
  1. OCREVUS [Suspect]
     Active Substance: OCRELIZUMAB
     Indication: Multiple sclerosis
     Dosage: DATE OF TREATMENT: 01/AUG/2022, 10/JAN/2022, 27/DEC/2021?DATE OF TREATMENT FOR 1ST HALF INFUSION : 1
     Route: 042
     Dates: start: 2021

REACTIONS (5)
  - Pneumonia [Recovered/Resolved]
  - Ill-defined disorder [Recovered/Resolved]
  - Asthenia [Not Recovered/Not Resolved]
  - Amnesia [Not Recovered/Not Resolved]
  - Off label use [Unknown]

NARRATIVE: CASE EVENT DATE: 20221101
